FAERS Safety Report 26130718 (Version 1)
Quarter: 2025Q4

REPORT INFORMATION
  Report Type: Spontaneous
  Country: KR (occurrence: KR)
  Receive Date: 20251208
  Receipt Date: 20251208
  Transmission Date: 20260117
  Serious: Yes (Hospitalization, Other)
  Sender: NOVO NORDISK
  Company Number: None

PATIENT
  Sex: Female

DRUGS (1)
  1. VICTOZA [Suspect]
     Active Substance: LIRAGLUTIDE
     Indication: Product used for unknown indication
     Dosage: UNK

REACTIONS (19)
  - Anomalous pulmonary venous connection [Unknown]
  - Nasopharyngitis [Recovered/Resolved]
  - Pericardial effusion [Unknown]
  - Brain natriuretic peptide increased [Unknown]
  - Pyrexia [Unknown]
  - Cold sweat [Recovering/Resolving]
  - Insomnia [Recovering/Resolving]
  - Contusion [Recovered/Resolved]
  - Pain in jaw [Unknown]
  - Flushing [Unknown]
  - Oxygen saturation decreased [Recovering/Resolving]
  - General physical health deterioration [Unknown]
  - Anaemia [Unknown]
  - Peripheral swelling [Unknown]
  - Heart rate increased [Unknown]
  - Diarrhoea [Unknown]
  - Fatigue [Unknown]
  - Dizziness [Unknown]
  - Hypoglycaemia [Unknown]
